FAERS Safety Report 21901319 (Version 3)
Quarter: 2023Q1

REPORT INFORMATION
  Report Type: Spontaneous
  Country: LU (occurrence: LU)
  Receive Date: 20230123
  Receipt Date: 20230316
  Transmission Date: 20230418
  Serious: Yes (Other)
  Sender: FDA-Public Use
  Company Number: LU-GILEAD-2023-0613071

PATIENT
  Age: 60 Year
  Sex: Male

DRUGS (13)
  1. VIREAD [Suspect]
     Active Substance: TENOFOVIR DISOPROXIL FUMARATE
     Indication: HIV infection
     Dosage: 245 MG, QD
     Route: 065
     Dates: start: 20030709, end: 20041207
  2. VIREAD [Suspect]
     Active Substance: TENOFOVIR DISOPROXIL FUMARATE
     Dosage: 245 MG, QD
     Route: 065
     Dates: start: 20160503, end: 20171004
  3. TRUVADA [Suspect]
     Active Substance: EMTRICITABINE\TENOFOVIR DISOPROXIL FUMARATE
     Indication: HIV infection
     Dosage: 1 DOSAGE FORM, QD
     Route: 065
  4. ATRIPLA [Suspect]
     Active Substance: EFAVIRENZ\EMTRICITABINE\TENOFOVIR DISOPROXIL FUMARATE
     Indication: HIV infection
     Dosage: 1 DOSAGE FORM, QD
     Route: 065
     Dates: start: 20110504, end: 201202
  5. LENACAPAVIR [Concomitant]
     Active Substance: LENACAPAVIR
     Route: 065
  6. DOLUTEGRAVIR [Concomitant]
     Active Substance: DOLUTEGRAVIR
  7. FOSTEMSAVIR [Concomitant]
     Active Substance: FOSTEMSAVIR
  8. DORAVIRINE [Concomitant]
     Active Substance: DORAVIRINE
  9. LAMIVUDINE [Concomitant]
     Active Substance: LAMIVUDINE
  10. COZAAR [Concomitant]
     Active Substance: LOSARTAN POTASSIUM
  11. GLUCOPHAGE [Concomitant]
     Active Substance: METFORMIN HYDROCHLORIDE
  12. PRAVASTATIN [Concomitant]
     Active Substance: PRAVASTATIN
  13. AMLODIPINE [Concomitant]
     Active Substance: AMLODIPINE BESYLATE

REACTIONS (2)
  - Nephropathy toxic [Unknown]
  - Virologic failure [Unknown]
